FAERS Safety Report 4808556-1 (Version None)
Quarter: 2005Q4

REPORT INFORMATION
  Report Type: 
  Country: None (occurrence: None)
  Receive Date: 20051025
  Receipt Date: 20051006
  Transmission Date: 20060501
  Serious: Yes (Other)
  Sender: FDA-Public Use
  Company Number: US-GLAXOSMITHKLINE-A0577561A

PATIENT
  Age: 63 Year
  Sex: Female

DRUGS (7)
  1. ROPINIROLE [Suspect]
     Indication: PARKINSON'S DISEASE
     Route: 048
     Dates: start: 20021010
  2. LISINOPRIL [Concomitant]
     Indication: HYPERTENSION
     Dosage: 7MG PER DAY
     Route: 048
     Dates: start: 20021024
  3. HYOSCYAMINE [Concomitant]
     Indication: VOLVULUS
     Dosage: .725MG AS REQUIRED
     Route: 048
     Dates: start: 20010901
  4. TIMOLOL MALEATE [Concomitant]
     Indication: GLAUCOMA
     Dosage: 1DROP TWICE PER DAY
     Route: 047
     Dates: start: 20011001
  5. BRIMONIDINE [Concomitant]
     Indication: GLAUCOMA
     Dosage: 1DROP TWICE PER DAY
     Route: 047
     Dates: start: 20030601
  6. PSYLLIUM [Concomitant]
     Indication: CONSTIPATION
     Dosage: 3TSP PER DAY
     Route: 048
     Dates: start: 20010701
  7. TRAZODONE HCL [Concomitant]
     Indication: INSOMNIA
     Route: 048
     Dates: start: 20040621

REACTIONS (3)
  - ANGER [None]
  - MANIA [None]
  - OBSESSIVE-COMPULSIVE DISORDER [None]
